FAERS Safety Report 8732531 (Version 1)
Quarter: 2012Q4

REPORT INFORMATION
  Report Type: 
  Country: US (occurrence: US)
  Receive Date: 20120912
  Receipt Date: 20120912
  Transmission Date: 20130627
  Serious: Yes (Hospitalization, Other)
  Sender: FDA-Public Use
  Company Number: US-ROCHE-1101277

PATIENT
  Age: 53 Year
  Sex: Female

DRUGS (1)
  1. ACTIVASE [Suspect]
     Indication: ACUTE MYOCARDIAL INFARCTION
     Route: 065
     Dates: start: 19940413

REACTIONS (5)
  - Myocardial infarction [Unknown]
  - Limb discomfort [Unknown]
  - Reperfusion arrhythmia [Unknown]
  - Pulmonary oedema [Recovered/Resolved]
  - Bradycardia [Unknown]
